FAERS Safety Report 5072769-7 (Version None)
Quarter: 2006Q3

REPORT INFORMATION
  Report Type: 
  Country: None (occurrence: None)
  Receive Date: 20060807
  Receipt Date: 20060606
  Transmission Date: 20061208
  Serious: Yes (Death, Hospitalization)
  Sender: FDA-Public Use
  Company Number: PHBS2006JP08553

PATIENT
  Sex: Male

DRUGS (1)
  1. NEORAL [Suspect]
     Indication: INTERSTITIAL LUNG DISEASE
     Dosage: UNK, UNK
     Route: 048
     Dates: start: 20060101

REACTIONS (2)
  - DISEASE PROGRESSION [None]
  - PERIPHERAL NERVE PALSY [None]
